FAERS Safety Report 10011632 (Version 1)
Quarter: 2014Q1

REPORT INFORMATION
  Report Type: Spontaneous
  Country: US (occurrence: US)
  Receive Date: 20140314
  Receipt Date: 20140314
  Transmission Date: 20141002
  Serious: Yes (Other)
  Sender: FDA-Public Use
  Company Number: US-ASTRAZENECA-2014SE16572

PATIENT
  Age: 63 Year
  Sex: Female
  Weight: 63.5 kg

DRUGS (3)
  1. SYMBICORT [Suspect]
     Indication: CHRONIC OBSTRUCTIVE PULMONARY DISEASE
     Dosage: 2 PUFFS BID
     Route: 055
     Dates: start: 201401
  2. MORPHINE [Suspect]
     Route: 065
  3. ETODOLAC [Concomitant]
     Dosage: (2) 500 MG PRN

REACTIONS (12)
  - Drug dependence [Recovered/Resolved]
  - Oral pain [Unknown]
  - Teeth brittle [Unknown]
  - Oral herpes [Unknown]
  - Aphagia [Unknown]
  - Dyspnoea [Unknown]
  - Suffocation feeling [Unknown]
  - General physical health deterioration [Unknown]
  - Sensation of pressure [Unknown]
  - Dry mouth [Not Recovered/Not Resolved]
  - Thirst [Not Recovered/Not Resolved]
  - Headache [Not Recovered/Not Resolved]
